FAERS Safety Report 7809726-0 (Version None)
Quarter: 2011Q4

REPORT INFORMATION
  Report Type: 
  Country: None (occurrence: None)
  Receive Date: 20111012
  Receipt Date: 20111004
  Transmission Date: 20120403
  Serious: Yes (Death)
  Sender: FDA-Public Use
  Company Number: LB-GLAXOSMITHKLINE-B0754626A

PATIENT
  Age: 70 Year
  Sex: Male

DRUGS (1)
  1. PROMACTA [Suspect]
     Indication: APLASTIC ANAEMIA
     Dosage: 25MG PER DAY
     Dates: start: 20110901

REACTIONS (1)
  - DEATH [None]
